FAERS Safety Report 6544891-7 (Version None)
Quarter: 2010Q1

REPORT INFORMATION
  Report Type: 
  Country: None (occurrence: None)
  Receive Date: 20100121
  Receipt Date: 20100112
  Transmission Date: 20100710
  Serious: Yes (Hospitalization)
  Sender: FDA-Public Use
  Company Number: JP-PFIZER INC-2010002906

PATIENT
  Age: 49 Year
  Sex: Male

DRUGS (5)
  1. NORVASC [Suspect]
     Indication: HYPERTENSION
     Dosage: 5 MG, DAILY
     Route: 048
     Dates: start: 20081118, end: 20100105
  2. OMEPRAZOLE [Suspect]
     Indication: GASTRIC ULCER
     Dosage: 10 MG, DAILY
     Route: 048
     Dates: start: 20080919, end: 20100105
  3. DAONIL [Concomitant]
     Dosage: UNK
     Route: 048
  4. MIGLITOL [Concomitant]
     Dosage: UNK
     Route: 048
  5. KINEDAK [Concomitant]
     Dosage: UNK
     Route: 048

REACTIONS (2)
  - GYNAECOMASTIA [None]
  - ILEUS [None]
